FAERS Safety Report 14047118 (Version 1)
Quarter: 2017Q4

REPORT INFORMATION
  Report Type: Spontaneous
  Country: JP (occurrence: JP)
  Receive Date: 20171005
  Receipt Date: 20171005
  Transmission Date: 20180321
  Serious: Yes (Death, Other)
  Sender: FDA-Public Use
  Company Number: JP-FRESENIUS KABI-FK201708199

PATIENT
  Age: 40 Year
  Sex: Male

DRUGS (16)
  1. VANCOMYCIN (MANUFACTURER UNKNOWN) [Suspect]
     Active Substance: VANCOMYCIN
     Route: 065
     Dates: start: 201104, end: 201112
  2. VANCOMYCIN (MANUFACTURER UNKNOWN) [Suspect]
     Active Substance: VANCOMYCIN
     Route: 065
     Dates: start: 200912, end: 201001
  3. VANCOMYCIN (MANUFACTURER UNKNOWN) [Suspect]
     Active Substance: VANCOMYCIN
     Route: 065
     Dates: end: 201004
  4. DAPTOMYCIN. [Suspect]
     Active Substance: DAPTOMYCIN
     Route: 065
     Dates: start: 201201
  5. DAPTOMYCIN. [Suspect]
     Active Substance: DAPTOMYCIN
     Indication: STAPHYLOCOCCAL INFECTION
     Route: 065
  6. TEICOPLANIN [Suspect]
     Active Substance: TEICOPLANIN
     Indication: STAPHYLOCOCCAL INFECTION
     Route: 065
  7. VANCOMYCIN (MANUFACTURER UNKNOWN) [Suspect]
     Active Substance: VANCOMYCIN
     Route: 065
     Dates: start: 201102
  8. RIFAMPIN (MANUFACTURER UNKNOWN) [Suspect]
     Active Substance: RIFAMPIN
     Indication: STAPHYLOCOCCAL INFECTION
     Route: 065
     Dates: start: 201001
  9. VANCOMYCIN (MANUFACTURER UNKNOWN) [Suspect]
     Active Substance: VANCOMYCIN
     Indication: STAPHYLOCOCCAL INFECTION
     Route: 042
     Dates: start: 200906
  10. ARBEKACIN [Suspect]
     Active Substance: ARBEKACIN
     Route: 030
  11. ERYTHROMYCIN. [Suspect]
     Active Substance: ERYTHROMYCIN
     Indication: STAPHYLOCOCCAL INFECTION
     Route: 065
     Dates: start: 201001
  12. LINEZOLID (MANUFACTURER UNKNOWN) [Suspect]
     Active Substance: LINEZOLID
     Indication: STAPHYLOCOCCAL INFECTION
     Route: 065
     Dates: start: 2009
  13. LINEZOLID (MANUFACTURER UNKNOWN) [Suspect]
     Active Substance: LINEZOLID
     Route: 065
     Dates: start: 2011, end: 201112
  14. LINEZOLID (MANUFACTURER UNKNOWN) [Suspect]
     Active Substance: LINEZOLID
     Route: 065
     Dates: start: 2012
  15. ARBEKACIN [Suspect]
     Active Substance: ARBEKACIN
     Indication: STAPHYLOCOCCAL INFECTION
     Route: 042
     Dates: start: 200906
  16. VANCOMYCIN (MANUFACTURER UNKNOWN) [Suspect]
     Active Substance: VANCOMYCIN
     Route: 065
     Dates: start: 201201

REACTIONS (6)
  - Staphylococcal infection [Fatal]
  - Infection [Fatal]
  - Renal impairment [Unknown]
  - Thrombocytopenia [Unknown]
  - Staphylococcal bacteraemia [Fatal]
  - Treatment failure [Fatal]
